FAERS Safety Report 5286396-X (Version None)
Quarter: 2007Q2

REPORT INFORMATION
  Report Type: 
  Country: None (occurrence: None)
  Receive Date: 20070404
  Receipt Date: 20070330
  Transmission Date: 20071010
  Serious: Yes (Other)
  Sender: FDA-Public Use
  Company Number: 2006UW10786

PATIENT
  Sex: Male
  Weight: 104.5 kg

DRUGS (6)
  1. SEROQUEL [Suspect]
     Route: 048
     Dates: start: 20030101
  2. ZYPREXA [Concomitant]
  3. WELL BURTON [Concomitant]
  4. PAROXETIVE [Concomitant]
  5. COCAINE [Concomitant]
     Dates: start: 19800101, end: 19900101
  6. METHADONE HCL [Concomitant]
     Dates: start: 19800101, end: 19900101

REACTIONS (2)
  - DIABETES MELLITUS [None]
  - PANCREATITIS [None]
